FAERS Safety Report 7879687-7 (Version None)
Quarter: 2011Q4

REPORT INFORMATION
  Report Type: 
  Country: None (occurrence: None)
  Receive Date: 20111101
  Receipt Date: 20110824
  Transmission Date: 20120403
  Serious: No
  Sender: FDA-Public Use
  Company Number: US-ABBOTT-11P-163-0848911-00

PATIENT
  Sex: Male

DRUGS (3)
  1. CLARITHROMYCIN [Suspect]
     Indication: SINUSITIS
     Dates: start: 20110701, end: 20110724
  2. NASACORT [Suspect]
     Indication: HYPERSENSITIVITY
     Route: 050
  3. UROXATRAL [Suspect]
     Indication: BENIGN PROSTATIC HYPERPLASIA
     Dates: start: 20100601

REACTIONS (2)
  - ABDOMINAL PAIN [None]
  - DIARRHOEA [None]
